FAERS Safety Report 8974216 (Version 1)
Quarter: 2012Q4

REPORT INFORMATION
  Report Type: Spontaneous
  Country: US (occurrence: None)
  Receive Date: 20121217
  Receipt Date: 20121217
  Transmission Date: 20130627
  Serious: No
  Sender: FDA-Public Use
  Company Number: None

PATIENT
  Age: 64 Year
  Sex: Male
  Weight: 93.9 kg

DRUGS (2)
  1. ELIGARD [Suspect]
     Indication: CARCINOMA PROSTATE
     Route: 042
  2. ELIGARD [Suspect]
     Indication: CARCINOMA PROSTATE
     Route: 058

REACTIONS (8)
  - Bone pain [None]
  - Fatigue [None]
  - Mood altered [None]
  - Mental impairment [None]
  - Hot flush [None]
  - Headache [None]
  - Joint swelling [None]
  - Oedema peripheral [None]
